FAERS Safety Report 7454674-1 (Version None)
Quarter: 2011Q2

REPORT INFORMATION
  Report Type: 
  Country: None (occurrence: None)
  Receive Date: 20110503
  Receipt Date: 20110422
  Transmission Date: 20111010
  Serious: Yes (Hospitalization, Other)
  Sender: FDA-Public Use
  Company Number: AR-AMGEN-ARGSP2011020000

PATIENT
  Age: 64 Year
  Sex: Female
  Weight: 48 kg

DRUGS (3)
  1. PREDNISONE [Concomitant]
     Dosage: UNK
     Route: 048
     Dates: start: 20090101
  2. DICLOFENAC [Concomitant]
     Dosage: UNK
     Route: 048
     Dates: start: 20090101
  3. ENBREL [Suspect]
     Indication: RHEUMATOID ARTHRITIS
     Dosage: 25 MG, WEEKLY
     Route: 058
     Dates: start: 20061104, end: 20100101

REACTIONS (4)
  - ESCHAR [None]
  - FISTULA [None]
  - INTESTINAL OBSTRUCTION [None]
  - LOCALISED INFECTION [None]
